FAERS Safety Report 12983078 (Version 1)
Quarter: 2016Q4

REPORT INFORMATION
  Report Type: Spontaneous
  Country: US (occurrence: US)
  Receive Date: 20161129
  Receipt Date: 20161129
  Transmission Date: 20170207
  Serious: No
  Sender: FDA-Public Use
  Company Number: US-MALLINCKRODT-T201602613

PATIENT
  Age: 39 Year
  Sex: Male
  Weight: 54 kg

DRUGS (3)
  1. FENTANYL TRANSDERMAL SYSTEM [Suspect]
     Active Substance: FENTANYL
     Indication: PAIN
     Dosage: 50 MCG/HR, ONE PATCH Q 2 DAYS
     Route: 062
     Dates: start: 201606, end: 20160614
  2. FENTANYL APOTEX [Concomitant]
     Active Substance: FENTANYL
     Indication: PAIN
     Dosage: 50 MCG/HR, ONE PATCH Q 2 DAYS
     Dates: end: 201606
  3. FENTANYL APOTEX [Concomitant]
     Active Substance: FENTANYL
     Dosage: 50 MCG/HR PATCH
     Route: 062
     Dates: start: 201606

REACTIONS (2)
  - Drug effect decreased [Recovered/Resolved]
  - Pain [Recovered/Resolved]

NARRATIVE: CASE EVENT DATE: 201606
